FAERS Safety Report 4525002-6 (Version None)
Quarter: 2004Q4

REPORT INFORMATION
  Report Type: 
  Country: None (occurrence: None)
  Receive Date: 20041117
  Receipt Date: 20030723
  Transmission Date: 20050328
  Serious: Yes (Other)
  Sender: FDA-Public Use
  Company Number: C2003-1877.01

PATIENT
  Age: 43 Year
  Sex: Female

DRUGS (7)
  1. CLOZAPINE [Suspect]
     Indication: SCHIZOPHRENIA
     Dosage: 300MG BID, ORAL
     Route: 048
     Dates: start: 20030703
  2. DOCUSATE SODIUM [Concomitant]
  3. FOLIC ACID [Concomitant]
  4. TOPIRMATE [Concomitant]
  5. VALPROIC ACID [Concomitant]
  6. ATENOLOL [Concomitant]
  7. FERROUS GLUCONATE [Concomitant]

REACTIONS (1)
  - NEUTROPHIL COUNT DECREASED [None]
